FAERS Safety Report 22328425 (Version 1)
Quarter: 2023Q2

REPORT INFORMATION
  Report Type: Spontaneous
  Country: US (occurrence: US)
  Receive Date: 20230517
  Receipt Date: 20230517
  Transmission Date: 20230722
  Serious: No
  Sender: FDA-Public Use
  Company Number: US-RADIUS HEALTH INC.-2022US005804

PATIENT
  Sex: Female

DRUGS (3)
  1. TYMLOS [Suspect]
     Active Substance: ABALOPARATIDE
     Indication: Senile osteoporosis
     Dosage: 80 MICROGRAM, QD
     Route: 058
     Dates: end: 20221205
  2. TYMLOS [Suspect]
     Active Substance: ABALOPARATIDE
     Indication: Fracture
  3. ELIQUIS [Concomitant]
     Active Substance: APIXABAN
     Indication: Product used for unknown indication

REACTIONS (6)
  - Blood calcium abnormal [Unknown]
  - Anxiety [Unknown]
  - Depression [Unknown]
  - Palpitations [Unknown]
  - Dyspnoea [Unknown]
  - Fatigue [Unknown]
